FAERS Safety Report 4663483-8 (Version None)
Quarter: 2005Q2

REPORT INFORMATION
  Report Type: 
  Country: None (occurrence: None)
  Receive Date: 20050517
  Receipt Date: 19970801
  Transmission Date: 20051028
  Serious: Yes (Other)
  Sender: FDA-Public Use
  Company Number: CH-JNJFOC-20050305704

PATIENT
  Sex: Female
  Weight: 50 kg

DRUGS (29)
  1. RISPERIDONE [Suspect]
     Route: 049
     Dates: start: 19970428
  2. RISPERIDONE [Suspect]
     Route: 049
     Dates: start: 19970428
  3. RISPERIDONE [Suspect]
     Route: 049
     Dates: start: 19970428
  4. RISPERIDONE [Suspect]
     Route: 049
     Dates: start: 19970428
  5. RISPERIDONE [Suspect]
     Route: 049
     Dates: start: 19970428
  6. RISPERIDONE [Suspect]
     Route: 049
     Dates: start: 19970428
  7. RISPERIDONE [Suspect]
     Indication: SCHIZOPHRENIA
     Route: 049
     Dates: start: 19970428
  8. CLOZAPINE [Concomitant]
     Dates: start: 19970425, end: 19970428
  9. CLOZAPINE [Concomitant]
     Dates: start: 19970425, end: 19970428
  10. PROMAZINE HCL [Concomitant]
     Dates: start: 19970724, end: 19970724
  11. LORAZEPAM [Concomitant]
     Dates: start: 19970425
  12. LORAZEPAM [Concomitant]
     Dates: start: 19970425
  13. LORAZEPAM [Concomitant]
     Dates: start: 19970425
  14. LORAZEPAM [Concomitant]
     Dates: start: 19970425
  15. LORAZEPAM [Concomitant]
     Dates: start: 19970425
  16. LORAZEPAM [Concomitant]
     Dates: start: 19970425
  17. FLURAZEPAM [Concomitant]
     Dates: start: 19970501, end: 19970702
  18. FLURAZEPAM [Concomitant]
     Dates: start: 19970501, end: 19970702
  19. FLURAZEPAM [Concomitant]
     Dates: start: 19970501, end: 19970702
  20. TRIHEXYPHENIDYL HCL [Concomitant]
     Dates: start: 19970516, end: 19970710
  21. MIANSERIN [Concomitant]
     Dates: start: 19970521
  22. MIANSERIN [Concomitant]
     Dates: start: 19970521
  23. MIANSERIN [Concomitant]
     Dates: start: 19970521
  24. LORAZEPAM [Concomitant]
     Dates: start: 19970606, end: 19970614
  25. LORAZEPAM [Concomitant]
     Dates: start: 19970606, end: 19970614
  26. FLURAZEPAM [Concomitant]
     Dates: start: 19970709, end: 19970723
  27. FLURAZEPAM [Concomitant]
     Dates: start: 19970709, end: 19970723
  28. FLURAZEPAM [Concomitant]
     Dates: start: 19970709, end: 19970723
  29. FLURAZEPAM [Concomitant]
     Dates: start: 19970709, end: 19970723

REACTIONS (1)
  - LEUKOPENIA [None]
